FAERS Safety Report 24992255 (Version 4)
Quarter: 2025Q3

REPORT INFORMATION
  Report Type: Report from Study
  Country: EU (occurrence: EU)
  Receive Date: 20250220
  Receipt Date: 20250713
  Transmission Date: 20251020
  Serious: Yes (Life-Threatening, Hospitalization)
  Sender: ALEXION PHARMACEUTICALS
  Company Number: EU-ASTRAZENECA-202502GLO013814ES

PATIENT
  Age: 82 Year
  Sex: Male
  Weight: 67 kg

DRUGS (1)
  1. OSIMERTINIB [Suspect]
     Active Substance: OSIMERTINIB
     Indication: Non-small cell lung cancer
     Dosage: 80 MILLIGRAM, QD
     Dates: start: 20240719, end: 20250211

REACTIONS (1)
  - Pancreatitis [Recovered/Resolved]

NARRATIVE: CASE EVENT DATE: 20241223
